FAERS Safety Report 10008779 (Version 2)
Quarter: 2014Q1

REPORT INFORMATION
  Report Type: Spontaneous
  Country: US (occurrence: US)
  Receive Date: 20140312
  Receipt Date: 20140312
  Transmission Date: 20141002
  Serious: No
  Sender: FDA-Public Use
  Company Number: US-INCYTE CORPORATION-2012IN000539

PATIENT
  Sex: Male

DRUGS (7)
  1. JAKAFI [Suspect]
     Indication: POLYCYTHAEMIA VERA
     Dosage: 10 MG, BID
     Route: 048
     Dates: start: 20120313, end: 2012
  2. JAKAFI [Suspect]
     Dosage: 5 MG, BID
     Route: 048
  3. NITRO PATCH [Concomitant]
     Dosage: UNK
  4. ASPIRIN [Concomitant]
     Dosage: UNK
  5. LISINOPRIL [Concomitant]
     Dosage: UNK
  6. DOXAZOSIN [Concomitant]
     Dosage: UNK
  7. HYDROXYUREA [Concomitant]
     Dosage: 500

REACTIONS (4)
  - Abdominal pain upper [Unknown]
  - Diarrhoea [Unknown]
  - Back pain [Unknown]
  - Headache [Unknown]
